FAERS Safety Report 16762830 (Version 1)
Quarter: 2019Q3

REPORT INFORMATION
  Report Type: Spontaneous
  Country: FR (occurrence: FR)
  Receive Date: 20190901
  Receipt Date: 20190901
  Transmission Date: 20191005
  Serious: Yes (Hospitalization)
  Sender: FDA-Public Use
  Company Number: FR-009507513-1908FRA010007

PATIENT
  Age: 2 Month
  Sex: Male
  Weight: 3.15 kg

DRUGS (1)
  1. CELESTENE (BETAMETHASONE) [Suspect]
     Active Substance: BETAMETHASONE
     Indication: PNEUMONIA ASPIRATION
     Dosage: 3 MILLIGRAM, QD
     Route: 048
     Dates: start: 20190724, end: 20190724

REACTIONS (3)
  - Wrong dose [Recovered/Resolved]
  - Abdominal pain lower [Recovered/Resolved]
  - Agitation [Recovered/Resolved]

NARRATIVE: CASE EVENT DATE: 20190724
